FAERS Safety Report 12650077 (Version 11)
Quarter: 2017Q3

REPORT INFORMATION
  Report Type: Report from Study
  Country: JP (occurrence: JP)
  Receive Date: 20160813
  Receipt Date: 20170928
  Transmission Date: 20171127
  Serious: Yes (Hospitalization, Other)
  Sender: FDA-Public Use
  Company Number: JP-AMGEN-JPNCT2016062965

PATIENT
  Age: 65 Year
  Sex: Female
  Weight: 39.7 kg

DRUGS (52)
  1. OXALIPLATIN. [Suspect]
     Active Substance: OXALIPLATIN
     Dosage: 80 MG, Q2WEEKS
     Route: 041
     Dates: start: 20160920, end: 20160920
  2. CALCIUM LEVOFOLINATE [Suspect]
     Active Substance: LEVOLEUCOVORIN CALCIUM
     Indication: COLON CANCER
     Dosage: 250 MG, Q2WEEKS
     Route: 041
     Dates: start: 20160322, end: 20160322
  3. FLUOROURACIL. [Suspect]
     Active Substance: FLUOROURACIL
     Dosage: 200 MG/M2, Q2WK
     Route: 040
     Dates: start: 20161109, end: 20161109
  4. HIRUDOID [Concomitant]
     Active Substance: GLYCOSAMINOGLYCANS
     Dosage: UNK UNK, BID
     Route: 062
     Dates: start: 20160223
  5. MINOCYCLINE HYDROCHLORIDE. [Concomitant]
     Active Substance: MINOCYCLINE HYDROCHLORIDE
     Indication: PROPHYLAXIS
     Dosage: UNK
     Route: 048
     Dates: start: 20160322, end: 20161122
  6. PANITUMUMAB [Suspect]
     Active Substance: PANITUMUMAB
     Dosage: 230 MG, Q2WK
     Route: 041
     Dates: start: 20160510, end: 20160510
  7. PANITUMUMAB [Suspect]
     Active Substance: PANITUMUMAB
     Dosage: 230 MG, Q2WK
     Route: 041
     Dates: start: 20161109, end: 20161109
  8. CALCIUM LEVOFOLINATE [Suspect]
     Active Substance: LEVOLEUCOVORIN CALCIUM
     Dosage: 250 MG, Q2WEEKS
     Route: 041
     Dates: start: 20160603, end: 20160708
  9. CALCIUM LEVOFOLINATE [Suspect]
     Active Substance: LEVOLEUCOVORIN CALCIUM
     Dosage: 250 MG, Q2WEEKS
     Route: 041
     Dates: start: 20161109, end: 20161109
  10. FLUOROURACIL. [Suspect]
     Active Substance: FLUOROURACIL
     Dosage: 3100 MG, Q2WEEKS
     Route: 041
     Dates: start: 20160322, end: 20160322
  11. FLUOROURACIL. [Suspect]
     Active Substance: FLUOROURACIL
     Dosage: 500 MG, Q2WK
     Route: 040
     Dates: start: 20160801, end: 20160801
  12. PANITUMUMAB [Suspect]
     Active Substance: PANITUMUMAB
     Dosage: 230 MG, Q2WK
     Route: 041
     Dates: start: 20160920, end: 20160920
  13. OXALIPLATIN. [Suspect]
     Active Substance: OXALIPLATIN
     Dosage: 110 MG, Q2WEEKS
     Route: 041
     Dates: start: 20160415, end: 20160415
  14. CALCIUM LEVOFOLINATE [Suspect]
     Active Substance: LEVOLEUCOVORIN CALCIUM
     Dosage: 250 MG, Q2WEEKS
     Route: 041
     Dates: start: 20160824, end: 20160824
  15. CALCIUM LEVOFOLINATE [Suspect]
     Active Substance: LEVOLEUCOVORIN CALCIUM
     Dosage: 250 MG, Q2WEEKS
     Route: 041
     Dates: start: 20160920, end: 20160920
  16. CALCIUM LEVOFOLINATE [Suspect]
     Active Substance: LEVOLEUCOVORIN CALCIUM
     Dosage: 250 MG, Q2WEEKS
     Route: 041
     Dates: start: 20161014, end: 20161014
  17. FLUOROURACIL. [Suspect]
     Active Substance: FLUOROURACIL
     Dosage: 3100 MG, Q2WEEKS
     Route: 041
     Dates: start: 20160510, end: 20160510
  18. FLUOROURACIL. [Suspect]
     Active Substance: FLUOROURACIL
     Dosage: 3100 MG, Q2WEEKS
     Route: 041
     Dates: start: 20160920, end: 20160920
  19. HIRUDOID [Concomitant]
     Active Substance: GLYCOSAMINOGLYCANS
     Indication: DRY SKIN PROPHYLAXIS
     Dosage: UNK UNK, QID
     Route: 062
     Dates: start: 20160603
  20. RABEPRAZOLE SODIUM. [Concomitant]
     Active Substance: RABEPRAZOLE SODIUM
     Indication: ANTACID THERAPY
     Dosage: 10 MG, QD
     Route: 048
     Dates: start: 20160415, end: 20161201
  21. PANITUMUMAB [Suspect]
     Active Substance: PANITUMUMAB
     Dosage: 230 MG, Q2WK
     Route: 041
     Dates: start: 20160801, end: 20160801
  22. PANITUMUMAB [Suspect]
     Active Substance: PANITUMUMAB
     Dosage: 230 MG, Q2WK
     Route: 041
     Dates: start: 20160824, end: 20160824
  23. OXALIPLATIN. [Suspect]
     Active Substance: OXALIPLATIN
     Indication: COLON CANCER
     Dosage: 110 MG, Q2WEEKS
     Route: 041
     Dates: start: 20160322, end: 20160322
  24. CALCIUM LEVOFOLINATE [Suspect]
     Active Substance: LEVOLEUCOVORIN CALCIUM
     Dosage: 250 MG, Q2WEEKS
     Route: 041
     Dates: start: 20160510, end: 20160510
  25. FLUOROURACIL. [Suspect]
     Active Substance: FLUOROURACIL
     Dosage: 500 MG, Q2WEEKS
     Route: 040
     Dates: start: 20160415, end: 20160415
  26. FLUOROURACIL. [Suspect]
     Active Substance: FLUOROURACIL
     Dosage: 3100 MG, Q2WEEKS
     Route: 041
     Dates: start: 20160415, end: 20160415
  27. FLUOROURACIL. [Suspect]
     Active Substance: FLUOROURACIL
     Dosage: 500 MG, Q2WK
     Route: 040
     Dates: start: 20160824, end: 20160824
  28. PANITUMUMAB [Suspect]
     Active Substance: PANITUMUMAB
     Indication: COLON CANCER
     Dosage: 230 MG, Q2WK
     Route: 041
     Dates: start: 20160322, end: 20160322
  29. OXALIPLATIN. [Suspect]
     Active Substance: OXALIPLATIN
     Dosage: 110 MG, Q2WEEKS
     Route: 041
     Dates: start: 20160603, end: 20160708
  30. OXALIPLATIN. [Suspect]
     Active Substance: OXALIPLATIN
     Dosage: 110 MG, Q2WEEKS
     Route: 041
     Dates: start: 20160801, end: 20160801
  31. OXALIPLATIN. [Suspect]
     Active Substance: OXALIPLATIN
     Dosage: 80 MG, Q2WEEKS
     Route: 041
     Dates: start: 20161014, end: 20161014
  32. CALCIUM LEVOFOLINATE [Suspect]
     Active Substance: LEVOLEUCOVORIN CALCIUM
     Dosage: 250 MG, Q2WEEKS
     Route: 041
     Dates: start: 20160415, end: 20160415
  33. FLUOROURACIL. [Suspect]
     Active Substance: FLUOROURACIL
     Indication: COLON CANCER
     Dosage: 500 MG, Q2WK
     Route: 040
     Dates: start: 20160322, end: 20160322
  34. FLUOROURACIL. [Suspect]
     Active Substance: FLUOROURACIL
     Dosage: 500 MG, Q2WK
     Route: 040
     Dates: start: 20160603, end: 20160708
  35. FLUOROURACIL. [Suspect]
     Active Substance: FLUOROURACIL
     Dosage: 3100 MG, Q2WEEKS
     Route: 041
     Dates: start: 20160603, end: 20160708
  36. FLUOROURACIL. [Suspect]
     Active Substance: FLUOROURACIL
     Dosage: 200 MG/M2, Q2WK
     Route: 040
     Dates: start: 20160920, end: 20160920
  37. FLUOROURACIL. [Suspect]
     Active Substance: FLUOROURACIL
     Dosage: 200 MG/M2, Q2WK
     Route: 040
     Dates: start: 20161014, end: 20161014
  38. FLUOROURACIL. [Suspect]
     Active Substance: FLUOROURACIL
     Dosage: 3100 MG, Q2WEEKS
     Route: 041
     Dates: start: 20161014, end: 20161014
  39. URSODEOXYCHOLIC ACID [Concomitant]
     Active Substance: URSODIOL
     Indication: HEPATIC FUNCTION ABNORMAL
     Dosage: 100 MG, TID
     Route: 048
     Dates: start: 20160527, end: 20161201
  40. PANITUMUMAB [Suspect]
     Active Substance: PANITUMUMAB
     Dosage: 230 MG, Q2WK
     Route: 041
     Dates: start: 20160415, end: 20160415
  41. PANITUMUMAB [Suspect]
     Active Substance: PANITUMUMAB
     Dosage: 230 MG, Q2WK
     Route: 041
     Dates: start: 20160603, end: 20160708
  42. PANITUMUMAB [Suspect]
     Active Substance: PANITUMUMAB
     Dosage: 230 MG, Q2WK
     Route: 041
     Dates: start: 20161014, end: 20161014
  43. OXALIPLATIN. [Suspect]
     Active Substance: OXALIPLATIN
     Dosage: 110 MG, Q2WEEKS
     Route: 041
     Dates: start: 20160510, end: 20160510
  44. OXALIPLATIN. [Suspect]
     Active Substance: OXALIPLATIN
     Dosage: 110 MG, Q2WEEKS
     Route: 041
     Dates: start: 20160824, end: 20160824
  45. FLUOROURACIL. [Suspect]
     Active Substance: FLUOROURACIL
     Dosage: 3100 MG, Q2WEEKS
     Route: 041
     Dates: start: 20160824, end: 20160824
  46. PREDNISOLONE VALEROACETATE [Concomitant]
     Indication: RASH
     Dosage: UNK UNK, BID
     Route: 062
     Dates: start: 20160322
  47. OXALIPLATIN. [Suspect]
     Active Substance: OXALIPLATIN
     Dosage: 80 MG, Q2WEEKS
     Route: 041
     Dates: start: 20161109, end: 20161109
  48. CALCIUM LEVOFOLINATE [Suspect]
     Active Substance: LEVOLEUCOVORIN CALCIUM
     Dosage: 250 MG, Q2WEEKS
     Route: 041
     Dates: start: 20160801, end: 20160801
  49. FLUOROURACIL. [Suspect]
     Active Substance: FLUOROURACIL
     Dosage: 500 MG, Q2WK
     Route: 040
     Dates: start: 20160510, end: 20160510
  50. FLUOROURACIL. [Suspect]
     Active Substance: FLUOROURACIL
     Dosage: 3100 MG, Q2WEEKS
     Route: 041
     Dates: start: 20160801, end: 20160801
  51. FLUOROURACIL. [Suspect]
     Active Substance: FLUOROURACIL
     Dosage: 3100 MG, Q2WEEKS
     Route: 041
     Dates: start: 20161109, end: 20161111
  52. BETAMETHASONE BUTYRATE PROPIONATE [Concomitant]
     Active Substance: BETAMETHASONE BUTYRATE PROPIONATE
     Indication: RASH
     Dosage: UNK UNK, BID
     Route: 062
     Dates: start: 20160322

REACTIONS (15)
  - Alanine aminotransferase increased [Not Recovered/Not Resolved]
  - Dysgeusia [Not Recovered/Not Resolved]
  - White blood cell count decreased [Recovered/Resolved]
  - Decreased appetite [Unknown]
  - Peripheral sensory neuropathy [Not Recovered/Not Resolved]
  - Stomatitis [Not Recovered/Not Resolved]
  - Aspartate aminotransferase increased [Not Recovered/Not Resolved]
  - Hypoalbuminaemia [Not Recovered/Not Resolved]
  - Pigmentation disorder [Not Recovered/Not Resolved]
  - Neutrophil count decreased [Recovered/Resolved]
  - Cholangitis [Recovering/Resolving]
  - Dermatitis acneiform [Not Recovered/Not Resolved]
  - Dry skin [Not Recovered/Not Resolved]
  - Nausea [Not Recovered/Not Resolved]
  - Blood bilirubin increased [Recovered/Resolved]

NARRATIVE: CASE EVENT DATE: 20161201
